FAERS Safety Report 19673142 (Version 2)
Quarter: 2022Q3

REPORT INFORMATION
  Report Type: Spontaneous
  Country: US (occurrence: US)
  Receive Date: 20210809
  Receipt Date: 20220805
  Transmission Date: 20221027
  Serious: Yes (Other)
  Sender: FDA-Public Use
  Company Number: US-ACCORD-153037

PATIENT
  Age: 60 Year
  Sex: Female

DRUGS (11)
  1. DOCETAXEL [Suspect]
     Active Substance: DOCETAXEL
     Indication: Breast cancer
     Dosage: EVERY THREE WEEKS
     Dates: start: 20160210, end: 20160413
  2. TAXOTERE [Suspect]
     Active Substance: DOCETAXEL
     Indication: Breast cancer
  3. PERJETA [Suspect]
     Active Substance: PERTUZUMAB
     Indication: Breast cancer
  4. HERCEPTIN [Suspect]
     Active Substance: TRASTUZUMAB
     Indication: Breast cancer
  5. VENLAFAXINE [Concomitant]
     Active Substance: VENLAFAXINE HYDROCHLORIDE
     Dosage: STRENGTH: 150 MG
     Dates: start: 1994
  6. ATORVASTATIN [Concomitant]
     Active Substance: ATORVASTATIN
     Dosage: STRENGTH: 20 MG
     Dates: start: 1995
  7. TOLTERODINE [Concomitant]
     Active Substance: TOLTERODINE
     Dosage: STRENGTH: 4 MG
     Dates: start: 1992
  8. TAMOXIFEN [Concomitant]
     Active Substance: TAMOXIFEN
     Dosage: STRENGTH: 20 MG
     Dates: start: 201607
  9. METOPROLOL [Concomitant]
     Active Substance: METOPROLOL
     Dosage: STRENGTH: 50 MG
     Dates: start: 1995
  10. LISINOPRIL [Concomitant]
     Active Substance: LISINOPRIL
     Dosage: STRENGTH: 10 MG
     Dates: start: 2005
  11. KLONOPIN [Concomitant]
     Active Substance: CLONAZEPAM
     Dosage: STRENGTH: 0.5 MG
     Dates: start: 1994

REACTIONS (1)
  - Alopecia [Not Recovered/Not Resolved]
